FAERS Safety Report 5304747-4 (Version None)
Quarter: 2007Q2

REPORT INFORMATION
  Report Type: 
  Country: None (occurrence: None)
  Receive Date: 20070423
  Receipt Date: 20070416
  Transmission Date: 20071010
  Serious: Yes (Other)
  Sender: FDA-Public Use
  Company Number: US-ALLERGAN-0703786US

PATIENT
  Age: 61 Year
  Sex: Female

DRUGS (1)
  1. BOTOX [Suspect]
     Indication: MYOPATHY
     Dosage: 25 UNITS, SINGLE
     Route: 030

REACTIONS (6)
  - CHROMATOPSIA [None]
  - OPTIC DISC HAEMORRHAGE [None]
  - OPTIC NEUROPATHY [None]
  - PAPILLOEDEMA [None]
  - SCOTOMA [None]
  - VISUAL ACUITY REDUCED [None]
